FAERS Safety Report 10561581 (Version 3)
Quarter: 2014Q4

REPORT INFORMATION
  Report Type: Report from Study
  Country: US (occurrence: US)
  Receive Date: 20141103
  Receipt Date: 20141223
  Transmission Date: 20150529
  Serious: Yes (Hospitalization)
  Sender: FDA-Public Use
  Company Number: US-ACTELION-A-US2014-94112

PATIENT
  Age: 72 Year
  Sex: Male

DRUGS (13)
  1. TRACLEER [Suspect]
     Active Substance: BOSENTAN\BOSENTAN MONOHYDRATE
     Indication: PULMONARY ARTERIAL HYPERTENSION
     Dosage: UNK
     Route: 048
  2. CLINDAMYCIN [Concomitant]
     Active Substance: CLINDAMYCIN\CLINDAMYCIN PHOSPHATE
  3. NIASPAN [Concomitant]
     Active Substance: NIACIN
  4. VENTAVIS [Suspect]
     Active Substance: ILOPROST
     Indication: PULMONARY ARTERIAL HYPERTENSION
     Dosage: 4-6X/DAILY
     Route: 055
     Dates: start: 20120126
  5. FUROSEMIDE. [Concomitant]
     Active Substance: FUROSEMIDE
  6. POTASSIUM [Concomitant]
     Active Substance: POTASSIUM
  7. ACYCLOVIR. [Concomitant]
     Active Substance: ACYCLOVIR
  8. TRACLEER [Suspect]
     Active Substance: BOSENTAN\BOSENTAN MONOHYDRATE
     Dosage: UNK
     Route: 048
  9. ZETIA [Concomitant]
     Active Substance: EZETIMIBE
  10. LYRICA [Concomitant]
     Active Substance: PREGABALIN
  11. SPIRONOLACTONE. [Concomitant]
     Active Substance: SPIRONOLACTONE
  12. ALPRAZOLAM. [Concomitant]
     Active Substance: ALPRAZOLAM
  13. COUMADIN [Concomitant]
     Active Substance: WARFARIN SODIUM

REACTIONS (4)
  - Oedema [Unknown]
  - Drug dose omission [Unknown]
  - Skin wound [Unknown]
  - Fluid retention [Unknown]

NARRATIVE: CASE EVENT DATE: 20141021
